FAERS Safety Report 21786132 (Version 2)
Quarter: 2023Q1

REPORT INFORMATION
  Report Type: Spontaneous
  Country: US (occurrence: US)
  Receive Date: 20221228
  Receipt Date: 20230202
  Transmission Date: 20230417
  Serious: No
  Sender: FDA-Public Use
  Company Number: US-AMGEN-USASP2022211063

PATIENT
  Age: 16 Year
  Sex: Female

DRUGS (10)
  1. NPLATE [Suspect]
     Active Substance: ROMIPLOSTIM
     Indication: Immune thrombocytopenia
     Dosage: 60 MICROGRAM, QWK
     Route: 058
     Dates: start: 20211208
  2. NPLATE [Suspect]
     Active Substance: ROMIPLOSTIM
     Dosage: 120 MICROGRAM, QWK
     Route: 058
     Dates: start: 20211221
  3. NPLATE [Suspect]
     Active Substance: ROMIPLOSTIM
     Dosage: 180 MICROGRAM, QWK
     Route: 058
     Dates: start: 20220103
  4. NPLATE [Suspect]
     Active Substance: ROMIPLOSTIM
     Dosage: 240 MICROGRAM, QWK
     Route: 058
     Dates: start: 20220118
  5. NPLATE [Suspect]
     Active Substance: ROMIPLOSTIM
     Dosage: 300 MICROGRAM, QWK
     Route: 058
     Dates: start: 20220131
  6. NPLATE [Suspect]
     Active Substance: ROMIPLOSTIM
     Dosage: 360 MICROGRAM, QWK
     Route: 058
     Dates: start: 20220222
  7. NPLATE [Suspect]
     Active Substance: ROMIPLOSTIM
     Dosage: 427 MICROGRAM, QWK
     Route: 058
     Dates: start: 20220308
  8. NPLATE [Suspect]
     Active Substance: ROMIPLOSTIM
     Dosage: 480 MICROGRAM, QWK
     Route: 058
     Dates: start: 20220802
  9. AYGESTIN [Concomitant]
     Active Substance: NORETHINDRONE ACETATE
     Indication: Menstrual disorder
  10. CONCERTA [Concomitant]
     Active Substance: METHYLPHENIDATE HYDROCHLORIDE

REACTIONS (4)
  - Therapeutic product effect decreased [Not Recovered/Not Resolved]
  - Illness [Unknown]
  - Cough [Not Recovered/Not Resolved]
  - Arthralgia [Unknown]

NARRATIVE: CASE EVENT DATE: 20220901
